FAERS Safety Report 9284982 (Version 1)
Quarter: 2013Q2

REPORT INFORMATION
  Report Type: Report from Study
  Country: VN (occurrence: VN)
  Receive Date: 20130513
  Receipt Date: 20130513
  Transmission Date: 20140414
  Serious: Yes (Other)
  Sender: FDA-Public Use
  Company Number: PHHY2013VN024705

PATIENT
  Age: 60 Year
  Sex: Female

DRUGS (2)
  1. GLIVEC [Suspect]
     Indication: GASTROINTESTINAL STROMAL TUMOUR
     Dosage: 400 MG PER DAY
     Route: 048
     Dates: start: 20080922, end: 20130103
  2. GLIVEC [Suspect]
     Dosage: 600 MG PER DAY
     Route: 048
     Dates: start: 20130103, end: 20130312

REACTIONS (8)
  - Gastrointestinal stromal tumour [Unknown]
  - Malignant neoplasm progression [Unknown]
  - Metastases to liver [Not Recovered/Not Resolved]
  - Metastases to peritoneum [Unknown]
  - Cachexia [Not Recovered/Not Resolved]
  - Vomiting [Not Recovered/Not Resolved]
  - Aspartate aminotransferase increased [Unknown]
  - Blood sodium decreased [Unknown]
